FAERS Safety Report 7549371-8 (Version None)
Quarter: 2011Q2

REPORT INFORMATION
  Report Type: 
  Country: None (occurrence: None)
  Receive Date: 20110615
  Receipt Date: 20030410
  Transmission Date: 20111010
  Serious: Yes (Death)
  Sender: FDA-Public Use
  Company Number: PHHO2003CO05208

PATIENT
  Sex: Female

DRUGS (1)
  1. STARLIX [Suspect]
     Dosage: 120 MG, UNK
     Dates: start: 20020901

REACTIONS (1)
  - INTESTINAL OBSTRUCTION [None]
